FAERS Safety Report 24286571 (Version 4)
Quarter: 2024Q4

REPORT INFORMATION
  Report Type: Spontaneous
  Country: US (occurrence: US)
  Receive Date: 20240905
  Receipt Date: 20241003
  Transmission Date: 20250114
  Serious: Yes (Disabling, Other)
  Sender: PFIZER
  Company Number: US-PFIZER INC-202400247753

PATIENT
  Age: 80 Year
  Sex: Female
  Weight: 66.67 kg

DRUGS (17)
  1. NURTEC ODT [Suspect]
     Active Substance: RIMEGEPANT SULFATE
     Indication: Migraine
     Dosage: 75 MG, 1X/DAY
     Route: 060
     Dates: start: 20230714, end: 20230715
  2. TYLENOL [Concomitant]
     Active Substance: ACETAMINOPHEN
     Indication: Headache
     Dosage: 500 MG, 4X/DAY
  3. FOSAMAX [Concomitant]
     Active Substance: ALENDRONATE SODIUM
     Dosage: TAKE 1 TABLET (70MG) BY MOUTH EVERY 7 DAYS
     Route: 048
  4. ASPIRIN [Concomitant]
     Active Substance: ASPIRIN
     Dosage: TAKE 1 TABLET (81MG) BY MOUTH ONCE DAILY
     Route: 048
  5. LIPITOR [Concomitant]
     Active Substance: ATORVASTATIN CALCIUM
     Dosage: TAKE 1 TABLET (10 MG) BY MOUTH ONCE DAILY
     Route: 048
  6. CALCIUM CARBONATE\CHOLECALCIFEROL [Concomitant]
     Active Substance: CALCIUM CARBONATE\CHOLECALCIFEROL
     Dosage: TAKE 2 TABLETS BY MOUTH 2 TIMES A DAY
     Route: 048
  7. ZYRTEC [Concomitant]
     Active Substance: CETIRIZINE HYDROCHLORIDE
     Dosage: TAKE 1 TABLET (10 MG) BY MOUTH ONCE DAILY
     Route: 048
  8. COD LIVER OIL [Concomitant]
     Active Substance: COD LIVER OIL
     Dosage: UNK
     Route: 048
  9. VOLTAREN [Concomitant]
     Active Substance: DICLOFENAC SODIUM
     Dosage: APPLY TO BACK, HIP OR KNEE 4 TIMES DAILY AS NEEDED
  10. BARACLUDE [Concomitant]
     Active Substance: ENTECAVIR
     Dosage: TAKE 1 TABLET (1MG) BY MOUTH ONCE DAILY
     Route: 048
  11. FLAXSEED [Concomitant]
     Active Substance: FLAX SEED
     Dosage: POWDER, TAKE BY MOUTH
     Route: 048
  12. HYDRODIURIL [Concomitant]
     Active Substance: HYDROCHLOROTHIAZIDE
     Dosage: TAKE 1 TABLET (25MG) BY MOUTH ONCE DAILY
     Route: 048
  13. XYLOCAINE [Concomitant]
     Active Substance: LIDOCAINE HYDROCHLORIDE
     Dosage: APPLY TO AFFECTED AREAS (LOWER BACK) THREE TIMES PER DAY AS NEEDED
  14. TOPROL XL [Concomitant]
     Active Substance: METOPROLOL SUCCINATE
     Dosage: TAKE 1 TABLET DAILY (DO NOT CRUSH OR CHEW)
  15. POTASSIUM CITRATE [Concomitant]
     Active Substance: POTASSIUM CITRATE
     Dosage: UNK
     Route: 048
  16. VIREAD [Concomitant]
     Active Substance: TENOFOVIR DISOPROXIL FUMARATE
     Dosage: TAKE 1 TABLET (300 MG) BY MOUTH ONCE DAILY
     Route: 048
  17. NEXIUM I.V. [Concomitant]
     Active Substance: ESOMEPRAZOLE SODIUM
     Dosage: TAKE 1 CAPSULE (40 MG) BY MOUTH ONCE DAILY
     Route: 048

REACTIONS (8)
  - Pharyngeal swelling [Not Recovered/Not Resolved]
  - Dysphagia [Not Recovered/Not Resolved]
  - Hypersensitivity [Unknown]
  - Swollen tongue [Not Recovered/Not Resolved]
  - Speech disorder [Not Recovered/Not Resolved]
  - Tongue disorder [Not Recovered/Not Resolved]
  - Tongue biting [Unknown]
  - Tongue injury [Unknown]

NARRATIVE: CASE EVENT DATE: 20230101
